FAERS Safety Report 8062756-9 (Version None)
Quarter: 2012Q1

REPORT INFORMATION
  Report Type: 
  Country: None (occurrence: None)
  Receive Date: 20120123
  Receipt Date: 20120118
  Transmission Date: 20120608
  Serious: Yes (Other)
  Sender: FDA-Public Use
  Company Number: JP-PFIZER INC-2011309485

PATIENT
  Age: 73 Year
  Sex: Female

DRUGS (6)
  1. LIPIODOL [Suspect]
     Dosage: UNK
     Dates: start: 20081001
  2. LIPIODOL [Suspect]
     Indication: HEPATIC NEOPLASM MALIGNANT
     Dosage: UNK
     Dates: start: 20061101
  3. EPIRUBICIN HYDROCHLORIDE [Suspect]
     Indication: HEPATIC NEOPLASM MALIGNANT
     Dosage: UNK
     Dates: start: 20061101
  4. SPONGEL [Suspect]
     Indication: HEPATIC NEOPLASM MALIGNANT
     Dosage: UNK
     Dates: start: 20061101
  5. EPIRUBICIN HYDROCHLORIDE [Suspect]
     Dosage: UNK
     Dates: start: 20081001
  6. SPONGEL [Suspect]
     Dosage: UNK
     Dates: start: 20081001

REACTIONS (1)
  - CEREBRAL INFARCTION [None]
